FAERS Safety Report 23734343 (Version 5)
Quarter: 2024Q3

REPORT INFORMATION
  Report Type: Spontaneous
  Country: US (occurrence: US)
  Receive Date: 20240412
  Receipt Date: 20240927
  Transmission Date: 20241016
  Serious: No
  Sender: GLAXOSMITHKLINE
  Company Number: US-GSK-US2024041992

PATIENT
  Age: 76 Year
  Sex: Female

DRUGS (5)
  1. NUCALA [Suspect]
     Active Substance: MEPOLIZUMAB
     Indication: Asthma
     Dosage: 100 MG
     Dates: start: 202306
  2. NUCALA [Suspect]
     Active Substance: MEPOLIZUMAB
     Dosage: 300 MG, Q4W
  3. NUCALA [Suspect]
     Active Substance: MEPOLIZUMAB
     Dosage: UNK
  4. PREDNISONE [Concomitant]
     Active Substance: PREDNISONE
     Indication: Product used for unknown indication
     Dosage: 10 ML
  5. PREDNISONE [Concomitant]
     Active Substance: PREDNISONE
     Dosage: 7 ML

REACTIONS (3)
  - Pruritus [Not Recovered/Not Resolved]
  - Rash [Not Recovered/Not Resolved]
  - Product dose omission issue [Unknown]

NARRATIVE: CASE EVENT DATE: 20240222
